FAERS Safety Report 6559462-6 (Version None)
Quarter: 2010Q1

REPORT INFORMATION
  Report Type: 
  Country: None (occurrence: None)
  Receive Date: 20100129
  Receipt Date: 20090924
  Transmission Date: 20100710
  Serious: No
  Sender: FDA-Public Use
  Company Number: US-ABBOTT-09P-163-0595815-00

PATIENT
  Sex: Female

DRUGS (1)
  1. HUMIRA [Suspect]
     Indication: PSORIASIS
     Dates: end: 20090901

REACTIONS (4)
  - JOINT SWELLING [None]
  - LUPUS-LIKE SYNDROME [None]
  - PYREXIA [None]
  - SYSTEMIC LUPUS ERYTHEMATOSUS RASH [None]
